FAERS Safety Report 5904784-2 (Version None)
Quarter: 2008Q3

REPORT INFORMATION
  Report Type: 
  Country: None (occurrence: None)
  Receive Date: 20080909
  Receipt Date: 20080613
  Transmission Date: 20090109
  Serious: Yes (Other)
  Sender: FDA-Public Use
  Company Number: 163-20785-08050836

PATIENT
  Age: 77 Year
  Sex: Female
  Weight: 59.4212 kg

DRUGS (6)
  1. THALOMID [Suspect]
     Indication: MULTIPLE MYELOMA
     Dosage: 100 MG, DAILY, ORAL : 50 MG, DAILY, ORAL
     Route: 048
     Dates: start: 20070501, end: 20080505
  2. THALOMID [Suspect]
     Indication: MULTIPLE MYELOMA
     Dosage: 100 MG, DAILY, ORAL : 50 MG, DAILY, ORAL
     Route: 048
     Dates: start: 20080519
  3. PREDNISONE [Concomitant]
  4. ALKERAN [Concomitant]
  5. OXYCODONE (OXYCODONE) (TABLETS) [Concomitant]
  6. ASA (ACETYLSALICYLIC ACID) (TABLETS) [Concomitant]

REACTIONS (8)
  - ASTHENIA [None]
  - BACK PAIN [None]
  - BONE PAIN [None]
  - CONSTIPATION [None]
  - DEEP VEIN THROMBOSIS [None]
  - HYPERHIDROSIS [None]
  - PAIN IN EXTREMITY [None]
  - WHITE BLOOD CELL COUNT DECREASED [None]
